FAERS Safety Report 13341989 (Version 1)
Quarter: 2017Q1

REPORT INFORMATION
  Report Type: Spontaneous
  Country: US (occurrence: US)
  Receive Date: 20170316
  Receipt Date: 20170316
  Transmission Date: 20170428
  Serious: No
  Sender: FDA-Public Use
  Company Number: US-ROCHE-1868541

PATIENT
  Age: 57 Year
  Sex: Male

DRUGS (4)
  1. LISINOPRIL. [Concomitant]
     Active Substance: LISINOPRIL
     Route: 048
  2. ERIVEDGE [Suspect]
     Active Substance: VISMODEGIB
     Indication: BASAL CELL CARCINOMA
     Dosage: YES
     Route: 048
     Dates: start: 201603
  3. IMIQUIMOD. [Concomitant]
     Active Substance: IMIQUIMOD
     Dosage: APPLY TOPICALLY TO AFFECTED AREA
     Route: 061
  4. TRIAMCINOLONE [Concomitant]
     Active Substance: TRIAMCINOLONE
     Dosage: APPLY TO AFFECTED AREA ONCE A DAY
     Route: 061

REACTIONS (1)
  - Dysgeusia [Not Recovered/Not Resolved]

NARRATIVE: CASE EVENT DATE: 20161001
